FAERS Safety Report 5910181-6 (Version None)
Quarter: 2008Q4

REPORT INFORMATION
  Report Type: 
  Country: None (occurrence: None)
  Receive Date: 20081007
  Receipt Date: 20071127
  Transmission Date: 20090506
  Serious: Yes (Other)
  Sender: FDA-Public Use
  Company Number: US-ASTRAZENECA-2007UW22746

PATIENT
  Age: 59 Year
  Sex: Female
  Weight: 83.9 kg

DRUGS (6)
  1. ARIMIDEX [Suspect]
     Indication: BREAST CANCER
     Route: 048
     Dates: start: 20060801, end: 20061201
  2. ARIMIDEX [Suspect]
     Route: 048
     Dates: start: 20070101
  3. LORAZEPAM [Concomitant]
  4. CYMBALTA [Concomitant]
  5. LEVOTHYROXINE SODIUM [Concomitant]
  6. GABAPENTIN [Concomitant]

REACTIONS (9)
  - ANXIETY [None]
  - ARTHRITIS [None]
  - CARPAL TUNNEL SYNDROME [None]
  - CRYING [None]
  - FEELING ABNORMAL [None]
  - IMPAIRED WORK ABILITY [None]
  - JOINT SWELLING [None]
  - MYALGIA [None]
  - WEIGHT INCREASED [None]
